FAERS Safety Report 15630865 (Version 1)
Quarter: 2018Q4

REPORT INFORMATION
  Report Type: Spontaneous
  Country: US (occurrence: US)
  Receive Date: 20181119
  Receipt Date: 20181119
  Transmission Date: 20190205
  Serious: No
  Sender: FDA-Public Use
  Company Number: US-009507513-1810USA011432

PATIENT
  Age: 41 Year
  Sex: Female
  Weight: 77.1 kg

DRUGS (1)
  1. NEXPLANON [Suspect]
     Active Substance: ETONOGESTREL
     Indication: CONTRACEPTION
     Dosage: IMPLANT; EVERY 3 YEARS, LEFT ARM
     Route: 059
     Dates: start: 20160204, end: 201802

REACTIONS (1)
  - Implant site pain [Not Recovered/Not Resolved]
